FAERS Safety Report 15540590 (Version 2)
Quarter: 2021Q1

REPORT INFORMATION
  Report Type: Spontaneous
  Country: DE (occurrence: DE)
  Receive Date: 20181023
  Receipt Date: 20210205
  Transmission Date: 20210419
  Serious: Yes (Hospitalization)
  Sender: FDA-Public Use
  Company Number: DE-ALK-ABELLO A/S-2018AA000200

PATIENT

DRUGS (4)
  1. ACARIZAX [Suspect]
     Active Substance: DERMATOPHAGOIDES FARINAE\DERMATOPHAGOIDES PTERONYSSINUS
     Indication: MITE ALLERGY
     Dosage: 12 SQ?HDM, QD
     Route: 048
     Dates: start: 201701
  2. NOVOPULMON [Concomitant]
     Active Substance: BUDESONIDE
     Indication: NASOPHARYNGITIS
  3. NOVOPULMON [Concomitant]
     Active Substance: BUDESONIDE
     Indication: COUGH
     Dosage: 200 MICROGRAM
     Route: 055
     Dates: start: 20180118, end: 20180119
  4. L?THYROX [Concomitant]
     Active Substance: LEVOTHYROXINE SODIUM
     Indication: PRODUCT USED FOR UNKNOWN INDICATION
     Dosage: UNK UNK, QD
     Dates: start: 201701

REACTIONS (10)
  - Nasopharyngitis [Unknown]
  - Musculoskeletal stiffness [Recovered/Resolved]
  - Headache [Recovered/Resolved]
  - Musculoskeletal stiffness [Not Recovered/Not Resolved]
  - Cough [Unknown]
  - Cough [Unknown]
  - Nasopharyngitis [Unknown]
  - Body temperature increased [Unknown]
  - C-reactive protein abnormal [Unknown]
  - Neck pain [Recovered/Resolved]

NARRATIVE: CASE EVENT DATE: 201801
